FAERS Safety Report 20628095 (Version 2)
Quarter: 2022Q2

REPORT INFORMATION
  Report Type: Spontaneous
  Country: IN (occurrence: IN)
  Receive Date: 20220323
  Receipt Date: 20220525
  Transmission Date: 20220720
  Serious: Yes (Other)
  Sender: FDA-Public Use
  Company Number: IN-PFIZER INC-2018081563

PATIENT
  Age: 50 Year
  Sex: Female
  Weight: 77 kg

DRUGS (5)
  1. CRIZOTINIB [Suspect]
     Active Substance: CRIZOTINIB
     Indication: Non-small cell lung cancer
     Dosage: 250 MG, 2X/DAY
     Route: 048
     Dates: start: 20140918
  2. OFLOXACIN [Concomitant]
     Active Substance: OFLOXACIN
     Dosage: 200 MG, 2X/DAY
  3. ZANTAC [Concomitant]
     Active Substance: RANITIDINE HYDROCHLORIDE
     Dosage: 150 MG, 2X/DAY
  4. VIBACT [Concomitant]
     Dosage: 1 DF, 2X/DAY
  5. TAMOXIFEN [Concomitant]
     Active Substance: TAMOXIFEN
     Dosage: UNK
     Dates: start: 202006

REACTIONS (13)
  - Nephrolithiasis [Unknown]
  - Second primary malignancy [Unknown]
  - Breast cancer [Unknown]
  - Diarrhoea [Unknown]
  - Abdominal pain upper [Unknown]
  - Nausea [Unknown]
  - Lymphoedema [Unknown]
  - Oedema peripheral [Unknown]
  - Pain [Unknown]
  - Vomiting [Unknown]
  - Weight increased [Unknown]
  - Pleural thickening [Unknown]
  - Pleural effusion [Unknown]

NARRATIVE: CASE EVENT DATE: 20220124
